FAERS Safety Report 6551051-2 (Version None)
Quarter: 2010Q1

REPORT INFORMATION
  Report Type: 
  Country: None (occurrence: None)
  Receive Date: 20100122
  Receipt Date: 20100122
  Transmission Date: 20100710
  Serious: No
  Sender: FDA-Public Use
  Company Number: None

PATIENT
  Age: 65 Year
  Sex: Male
  Weight: 95.2554 kg

DRUGS (6)
  1. ATENOLOL [Suspect]
     Indication: HYPERTENSION
     Dosage: TWICE DAILY PO
     Route: 048
  2. COLCINE [Concomitant]
  3. NORVASK [Concomitant]
  4. AGGRONOX [Concomitant]
  5. ZOCOR [Concomitant]
  6. MEDROL [Concomitant]

REACTIONS (3)
  - RASH [None]
  - SKIN BURNING SENSATION [None]
  - SKIN EXFOLIATION [None]
